FAERS Safety Report 24062478 (Version 1)
Quarter: 2024Q3

REPORT INFORMATION
  Report Type: Spontaneous
  Country: FR (occurrence: FR)
  Receive Date: 20240708
  Receipt Date: 20240708
  Transmission Date: 20241017
  Serious: Yes (Other)
  Sender: SANDOZ
  Company Number: None

PATIENT
  Age: 67 Year
  Sex: Male
  Weight: 71 kg

DRUGS (9)
  1. GEMCITABINE HYDROCHLORIDE [Suspect]
     Active Substance: GEMCITABINE HYDROCHLORIDE
     Indication: Lung adenocarcinoma
     Dosage: 2310 MG (TOTAL, C1J1)
     Route: 042
     Dates: start: 20230209, end: 20230209
  2. GEMCITABINE HYDROCHLORIDE [Suspect]
     Active Substance: GEMCITABINE HYDROCHLORIDE
     Dosage: 2310 MG (TOTAL, C1J8)
     Route: 042
     Dates: start: 20230223, end: 20230223
  3. GEMCITABINE HYDROCHLORIDE [Suspect]
     Active Substance: GEMCITABINE HYDROCHLORIDE
     Dosage: 2310 MG (TOTAL, C2J1)
     Route: 042
     Dates: start: 20230309, end: 20230309
  4. METHYLPREDNISOLONE ACETATE [Suspect]
     Active Substance: METHYLPREDNISOLONE ACETATE
     Indication: Lung adenocarcinoma
     Dosage: 40 MG (TOTAL, C1J1)
     Route: 042
     Dates: start: 20230209, end: 20230209
  5. METHYLPREDNISOLONE ACETATE [Suspect]
     Active Substance: METHYLPREDNISOLONE ACETATE
     Dosage: 40 MG (TOTAL, C1J8)
     Route: 042
     Dates: start: 20230223, end: 20230223
  6. METHYLPREDNISOLONE ACETATE [Suspect]
     Active Substance: METHYLPREDNISOLONE ACETATE
     Dosage: 40 MG (TOTAL, C2J1)
     Route: 042
     Dates: start: 20230309, end: 20230309
  7. ONDANSETRON [Suspect]
     Active Substance: ONDANSETRON
     Indication: Prophylaxis of nausea and vomiting
     Dosage: 8 MG (TOTAL, C1J1)
     Route: 042
     Dates: start: 20230209, end: 20230209
  8. ONDANSETRON [Suspect]
     Active Substance: ONDANSETRON
     Dosage: 8 MG (TOTAL, C1J8)
     Route: 042
     Dates: start: 20230223, end: 20230223
  9. ONDANSETRON [Suspect]
     Active Substance: ONDANSETRON
     Dosage: 8 MG (TOTAL, C2J1)
     Route: 042
     Dates: start: 20230309, end: 20230309

REACTIONS (1)
  - Hypertransaminasaemia [Recovered/Resolved]

NARRATIVE: CASE EVENT DATE: 20230309
